FAERS Safety Report 4373087-2 (Version None)
Quarter: 2004Q2

REPORT INFORMATION
  Report Type: 
  Country: None (occurrence: None)
  Receive Date: 20040526
  Receipt Date: 20040514
  Transmission Date: 20050107
  Serious: Yes (Other)
  Sender: FDA-Public Use
  Company Number: 2004033064

PATIENT
  Age: 29 Year
  Sex: Female

DRUGS (4)
  1. VFEND [Suspect]
     Indication: BRONCHOPULMONARY ASPERGILLOSIS
     Dosage: 400 MG (200 MG, 2 IN 1D) ORLA
     Route: 048
     Dates: start: 20030620
  2. PREDNISONE TAB [Suspect]
     Indication: ILL-DEFINED DISORDER
     Dosage: 10 MG ORAL
     Route: 048
     Dates: start: 20020501
  3. MYCOPHENOLATE MOFETIL (MYCOPHENOLATE MOFETIL) [Suspect]
     Indication: ILL-DEFINED DISORDER
     Dosage: 1.5 GRAM, ORAL
     Route: 048
     Dates: start: 20020501
  4. CYCLOSPORINE [Suspect]
     Indication: ILL-DEFINED DISORDER
     Dosage: 140 MG, ORAL
     Route: 048
     Dates: start: 20020501

REACTIONS (4)
  - BRONCHOPULMONARY ASPERGILLOSIS [None]
  - CHOLANGITIS [None]
  - CHOLECYSTITIS [None]
  - CHOLELITHIASIS [None]
